FAERS Safety Report 8137950-9 (Version None)
Quarter: 2012Q1

REPORT INFORMATION
  Report Type: 
  Country: None (occurrence: None)
  Receive Date: 20120103
  Receipt Date: 20110926
  Transmission Date: 20120608
  Serious: No
  Sender: FDA-Public Use
  Company Number: AE-2011-001332

PATIENT
  Age: 51 Year
  Sex: Male
  Weight: 106.5953 kg

DRUGS (9)
  1. QUINAPRIL HCL [Concomitant]
  2. MULTIVITAMIN [Concomitant]
  3. PEGASYS [Concomitant]
  4. TRAZODONE HCL [Concomitant]
  5. WELLBUTRIN [Concomitant]
  6. LABETALOL HCL [Concomitant]
  7. RIBAVIRIN [Concomitant]
  8. INCIVEK [Suspect]
     Dosage: 2250 MG (750 MG, 3 IN 1 D), ORAL
     Route: 048
     Dates: start: 20110902
  9. ASPIRIN [Concomitant]

REACTIONS (5)
  - ABDOMINAL DISTENSION [None]
  - RASH PRURITIC [None]
  - NAUSEA [None]
  - ANORECTAL DISCOMFORT [None]
  - MUSCLE SPASMS [None]
